FAERS Safety Report 22109804 (Version 1)
Quarter: 2023Q1

REPORT INFORMATION
  Report Type: Spontaneous
  Country: GB (occurrence: GB)
  Receive Date: 20230317
  Receipt Date: 20230317
  Transmission Date: 20230417
  Serious: Yes (Death, Other)
  Sender: FDA-Public Use
  Company Number: None

PATIENT
  Age: 43 Year
  Sex: Female

DRUGS (11)
  1. SIMVASTATIN [Suspect]
     Active Substance: SIMVASTATIN
     Dosage: 20 MILLIGRAM, QD
     Route: 048
     Dates: start: 20230227, end: 20230228
  2. CALCIUM CARBONATE\CHOLECALCIFEROL [Concomitant]
     Active Substance: CALCIUM CARBONATE\CHOLECALCIFEROL
     Dosage: 1.5 GRAM, BID
     Route: 048
     Dates: start: 20230228
  3. ALFENTANIL [Concomitant]
     Active Substance: ALFENTANIL
     Dosage: 17 MILLILITER
     Route: 058
     Dates: start: 20230228
  4. DEXTROSE [Concomitant]
     Active Substance: DEXTROSE
     Dosage: 500 MILLILITER
     Route: 042
     Dates: start: 20230228
  5. ACTRAPID [Concomitant]
     Active Substance: INSULIN HUMAN
     Dosage: AS PER INTRAVENOUS INSULIN REGIME (SEE COMMENTS)
     Route: 042
     Dates: start: 20230228
  6. LEVOBUPIVACAINE [Concomitant]
     Active Substance: LEVOBUPIVACAINE
     Dosage: UNK
     Route: 008
     Dates: start: 20230228
  7. FENTANYL [Concomitant]
     Active Substance: FENTANYL
     Dosage: 4I 1/4G/ML
     Route: 008
     Dates: start: 20230228
  8. ALBUTEROL [Concomitant]
     Active Substance: ALBUTEROL
     Dosage: 2 PUFF(S)
     Route: 055
     Dates: start: 20230228
  9. TIMOLOL [Concomitant]
     Active Substance: TIMOLOL
     Dosage: BOTH EYES
     Route: 050
     Dates: start: 20230228
  10. INSULIN NOS [Concomitant]
     Active Substance: INSULIN NOS
     Dosage: 100 UNIT/ML
     Route: 058
     Dates: start: 20230228, end: 20230228
  11. DIAZEPAM [Concomitant]
     Active Substance: DIAZEPAM
     Dosage: AT BEDTIME
     Route: 048
     Dates: start: 20230228

REACTIONS (1)
  - Myalgia [Fatal]
